FAERS Safety Report 18830567 (Version 1)
Quarter: 2021Q1

REPORT INFORMATION
  Report Type: Spontaneous
  Country: US (occurrence: US)
  Receive Date: 20210202
  Receipt Date: 20210202
  Transmission Date: 20210419
  Serious: Yes (Hospitalization)
  Sender: FDA-Public Use
  Company Number: None

PATIENT
  Age: 49 Year
  Sex: Female
  Weight: 132.75 kg

DRUGS (5)
  1. FAMOTIDINE TABLET, 10 MG [Suspect]
     Active Substance: FAMOTIDINE
     Indication: DYSPEPSIA
     Dosage: ?          QUANTITY:1 TABLET(S);?
     Route: 048
     Dates: start: 20210131, end: 20210131
  2. XOPENEX INHALER [Concomitant]
  3. VIT D [Concomitant]
     Active Substance: VITAMIN D NOS
  4. MULTI VIT [Concomitant]
     Active Substance: VITAMINS
  5. VITAMIN C [Concomitant]
     Active Substance: ASCORBIC ACID

REACTIONS (3)
  - Chromaturia [None]
  - Blood bilirubin increased [None]
  - Hepatic pain [None]

NARRATIVE: CASE EVENT DATE: 20210131
